FAERS Safety Report 20069494 (Version 2)
Quarter: 2024Q3

REPORT INFORMATION
  Report Type: Spontaneous
  Country: JP (occurrence: JP)
  Receive Date: 20211115
  Receipt Date: 20240913
  Transmission Date: 20241017
  Serious: Yes (Other)
  Sender: ABBVIE
  Company Number: JP-JNJFOC-20211126951

PATIENT

DRUGS (1)
  1. IMBRUVICA [Suspect]
     Active Substance: IBRUTINIB
     Indication: Chronic graft versus host disease
     Dosage: 140 MG
     Route: 048

REACTIONS (2)
  - Acute febrile neutrophilic dermatosis [Not Recovered/Not Resolved]
  - No adverse event [Unknown]
